FAERS Safety Report 9257944 (Version 1)
Quarter: 2013Q2

REPORT INFORMATION
  Report Type: Report from Study
  Country: BR (occurrence: BR)
  Receive Date: 20130426
  Receipt Date: 20130426
  Transmission Date: 20140414
  Serious: Yes (Life-Threatening)
  Sender: FDA-Public Use
  Company Number: BR-ROCHE-735107

PATIENT
  Age: 67 Year
  Sex: Female
  Weight: 55.5 kg

DRUGS (11)
  1. BEVACIZUMAB [Suspect]
     Indication: BREAST CANCER
     Dosage: DATE OF LAST DOSE PRIOR TO SAE: 02 JUNE 2010. DOSE AS PER PROTOCOL.
     Route: 042
  2. DOXORUBICIN [Suspect]
     Indication: BREAST CANCER
     Dosage: DATE OF LAST DOSE PRIOR TO SAE: 01 OCTOBER 2009.  FREQUENCY AS PER PROTOCOL.
     Route: 042
  3. CYCLOPHOSPHAMIDE [Suspect]
     Indication: BREAST CANCER
     Dosage: FREQUECNY AS PER PROTOCOL.  DATE OF LAST DOSE PRIOR TO SAE: 01 OCTOBER 2009.
     Route: 042
  4. AMLODIPINE [Concomitant]
     Route: 065
  5. HYDROCHLOROTHIAZIDE [Concomitant]
     Route: 065
  6. HYDROCHLOROTHIAZIDE [Concomitant]
     Route: 065
  7. LOSARTAN [Concomitant]
     Route: 065
  8. LOSARTAN [Concomitant]
     Route: 065
  9. CITALOPRAM [Concomitant]
     Route: 065
  10. CITALOPRAM [Concomitant]
     Route: 065
  11. ATENOLOL [Concomitant]
     Route: 065
     Dates: start: 20130328

REACTIONS (1)
  - Aortic dissection [Not Recovered/Not Resolved]
